FAERS Safety Report 7903416-1 (Version None)
Quarter: 2011Q4

REPORT INFORMATION
  Report Type: 
  Country: None (occurrence: None)
  Receive Date: 20111109
  Receipt Date: 20111103
  Transmission Date: 20120403
  Serious: Yes (Hospitalization, Other)
  Sender: FDA-Public Use
  Company Number: CA-AMGEN-CANSP2011017687

PATIENT
  Age: 40 Year
  Sex: Female
  Weight: 162.36 kg

DRUGS (3)
  1. ENBREL [Suspect]
     Indication: PSORIASIS
     Dosage: 50 MG, 2 TIMES/WK
     Route: 058
     Dates: start: 20090525, end: 20100412
  2. METFORMIN HCL [Concomitant]
     Indication: POLYCYSTIC OVARIES
  3. ENBREL [Suspect]
     Indication: POLYCYSTIC OVARIES

REACTIONS (5)
  - PNEUMONIA [None]
  - PULMONARY EMBOLISM [None]
  - NON-HODGKIN'S LYMPHOMA [None]
  - POLYCYSTIC OVARIES [None]
  - DEEP VEIN THROMBOSIS [None]
